FAERS Safety Report 19274637 (Version 5)
Quarter: 2023Q4

REPORT INFORMATION
  Report Type: Report from Study
  Country: DE (occurrence: DE)
  Receive Date: 20210519
  Receipt Date: 20231002
  Transmission Date: 20240110
  Serious: Yes (Other)
  Sender: FDA-Public Use
  Company Number: DE-NOVARTISPH-NVSC2021DE107066

PATIENT
  Age: 4 Year
  Sex: Male
  Weight: 20.4 kg

DRUGS (5)
  1. ILARIS [Suspect]
     Active Substance: CANAKINUMAB
     Indication: Mevalonate kinase deficiency
     Dosage: 105 MG
     Route: 058
     Dates: start: 20200102
  2. ILARIS [Suspect]
     Active Substance: CANAKINUMAB
     Dosage: 102 MG
     Route: 065
     Dates: start: 20210428
  3. ILARIS [Suspect]
     Active Substance: CANAKINUMAB
     Dosage: 105 MG
     Route: 058
     Dates: start: 20230308, end: 20230405
  4. COLCHICINE [Suspect]
     Active Substance: COLCHICINE
     Indication: Hypergammaglobulinaemia
     Dosage: 0.5 MG, BID
     Route: 048
     Dates: start: 20210811, end: 20230316
  5. COLCHICINE [Suspect]
     Active Substance: COLCHICINE
     Dosage: 1.25 MG, QD
     Route: 048
     Dates: start: 20230316

REACTIONS (10)
  - Neutropenia [Recovered/Resolved]
  - Neutropenia [Not Recovered/Not Resolved]
  - Pyrexia [Recovered/Resolved]
  - Headache [Recovered/Resolved]
  - Lymphadenopathy [Recovered/Resolved]
  - Abdominal pain [Recovered/Resolved]
  - Mevalonate kinase deficiency [Recovered/Resolved]
  - Condition aggravated [Recovered/Resolved]
  - Tonsillitis [Recovered/Resolved]
  - Product use in unapproved indication [Unknown]

NARRATIVE: CASE EVENT DATE: 20210504
